FAERS Safety Report 5390553-1 (Version None)
Quarter: 2007Q3

REPORT INFORMATION
  Report Type: 
  Country: None (occurrence: None)
  Receive Date: 20070718
  Receipt Date: 20061106
  Transmission Date: 20080115
  Serious: No
  Sender: FDA-Public Use
  Company Number: US-KINGPHARMUSA00001-K200601410

PATIENT

DRUGS (5)
  1. LEVOXYL [Suspect]
     Indication: HYPOTHYROIDISM
     Dosage: 100 MCG, QD
     Route: 048
     Dates: start: 20010101
  2. LEVOXYL [Suspect]
     Dosage: 12.5 MCG, QD
     Route: 048
  3. ACIPHEX [Concomitant]
     Indication: GASTROOESOPHAGEAL REFLUX DISEASE
     Dosage: 20 MG, QD
     Route: 048
  4. ALLEGRA [Concomitant]
     Indication: HYPERSENSITIVITY
     Dosage: UNK, QD
     Route: 048
  5. VITAMIN B12                        /00056201/ [Concomitant]
     Dosage: UNK, QD
     Route: 048

REACTIONS (6)
  - ABDOMINAL DISTENSION [None]
  - BLOOD THYROID STIMULATING HORMONE INCREASED [None]
  - CHILLS [None]
  - CONFUSIONAL STATE [None]
  - HEADACHE [None]
  - HEART RATE INCREASED [None]
